FAERS Safety Report 25986528 (Version 1)
Quarter: 2025Q4

REPORT INFORMATION
  Report Type: Spontaneous
  Country: EU (occurrence: EU)
  Receive Date: 20251101
  Receipt Date: 20251101
  Transmission Date: 20260117
  Serious: Yes (Life-Threatening, Hospitalization)
  Sender: TEVA
  Company Number: None

PATIENT
  Age: 59 Year
  Sex: Female

DRUGS (3)
  1. CAPECITABINE [Suspect]
     Active Substance: CAPECITABINE
     Indication: Breast cancer
     Dosage: 1250MG EVERY 12 HOURS, HAS RECEIVED 3 CYCLES, CAPECITABINE TEVA FILM-COATED TABLETS EFG 120 TABLETS
     Route: 048
     Dates: start: 20250606, end: 20250731
  2. HERZUMA [Suspect]
     Active Substance: TRASTUZUMAB-PKRB
     Indication: Breast cancer
     Dosage: 6MG/KG EVERY 21 DAYS, HAS RECEIVED 3 CYCLES, 1 VIAL
     Route: 042
     Dates: start: 20250606, end: 20250731
  3. TUKYSA [Suspect]
     Active Substance: TUCATINIB
     Indication: Breast cancer
     Dosage: 300MG EVERY 12 HOURS, HAS RECEIVED 3 CYCLES, 84 TABLETS
     Route: 048
     Dates: start: 20250606, end: 20250731

REACTIONS (3)
  - Cardiac failure [Recovering/Resolving]
  - Hypothyroidism [Recovering/Resolving]
  - Left ventricular dysfunction [Not Recovered/Not Resolved]

NARRATIVE: CASE EVENT DATE: 20250731
